FAERS Safety Report 8240085-8 (Version None)
Quarter: 2012Q1

REPORT INFORMATION
  Report Type: 
  Country: None (occurrence: None)
  Receive Date: 20120309
  Receipt Date: 20100722
  Transmission Date: 20120608
  Serious: Yes (Other)
  Sender: FDA-Public Use
  Company Number: PHHY2010US45121

PATIENT
  Age: 51 Year
  Sex: Female

DRUGS (1)
  1. EXTAVIA [Suspect]
     Indication: MULTIPLE SCLEROSIS
     Dosage: 0.3 MG, QOD, SUBCUTANEOUS
     Route: 058
     Dates: start: 20100316, end: 20100430

REACTIONS (7)
  - SKIN IRRITATION [None]
  - INJECTION SITE PAIN [None]
  - INJECTION SITE SWELLING [None]
  - INJECTION SITE ERYTHEMA [None]
  - RASH GENERALISED [None]
  - INJECTION SITE HAEMATOMA [None]
  - IRRITABILITY [None]
